FAERS Safety Report 18096241 (Version 1)
Quarter: 2020Q3

REPORT INFORMATION
  Report Type: Spontaneous
  Country: US (occurrence: US)
  Receive Date: 20200730
  Receipt Date: 20200730
  Transmission Date: 20201103
  Serious: No
  Sender: FDA-Public Use
  Company Number: US-TEVA-2020-US-1805690

PATIENT
  Age: 43 Year
  Sex: Female

DRUGS (1)
  1. COPAXONE [Suspect]
     Active Substance: GLATIRAMER ACETATE
     Indication: MULTIPLE SCLEROSIS
     Route: 058
     Dates: start: 20160306

REACTIONS (12)
  - Injection site warmth [Not Recovered/Not Resolved]
  - Sensitive skin [Unknown]
  - Injection site erythema [Not Recovered/Not Resolved]
  - Injection site induration [Unknown]
  - Wrong technique in product usage process [Unknown]
  - Injection site swelling [Not Recovered/Not Resolved]
  - Injection site pain [Not Recovered/Not Resolved]
  - Injection site cellulitis [Unknown]
  - Injection site streaking [Unknown]
  - Balance disorder [Unknown]
  - Sleep disorder [Recovered/Resolved]
  - Weight decreased [Unknown]

NARRATIVE: CASE EVENT DATE: 2018
